FAERS Safety Report 19287078 (Version 2)
Quarter: 2021Q2

REPORT INFORMATION
  Report Type: Other
  Country: US (occurrence: US)
  Receive Date: 20210521
  Receipt Date: 20210603
  Transmission Date: 20210717
  Serious: Yes (Other)
  Sender: FDA-Public Use
  Company Number: US-ROCHE-2829487

PATIENT
  Sex: Female

DRUGS (1)
  1. HERCEPTIN [Suspect]
     Active Substance: TRASTUZUMAB
     Indication: NEOPLASM MALIGNANT
     Dosage: INFUSE 350MG INTRAVENOUSLY WEEK 1 THEN INFUSE 176M
     Route: 065

REACTIONS (3)
  - Atrial fibrillation [Unknown]
  - Hypertension [Unknown]
  - Cerebrovascular accident [Unknown]
